FAERS Safety Report 6418018-6 (Version None)
Quarter: 2009Q4

REPORT INFORMATION
  Report Type: 
  Country: None (occurrence: None)
  Receive Date: 20091028
  Receipt Date: 20091020
  Transmission Date: 20100525
  Serious: Yes (Hospitalization, Other)
  Sender: FDA-Public Use
  Company Number: US-CELGENEUS-163-50794-09070288

PATIENT
  Sex: Male
  Weight: 65.7 kg

DRUGS (86)
  1. VIDAZA [Suspect]
     Route: 051
     Dates: start: 20090515, end: 20090522
  2. VIDAZA [Suspect]
     Route: 051
     Dates: start: 20090615, end: 20090623
  3. DEXTROSE [Concomitant]
     Indication: DRUG USE FOR UNKNOWN INDICATION
     Route: 051
  4. DILTIAZEM [Concomitant]
     Indication: DRUG USE FOR UNKNOWN INDICATION
     Route: 048
     Dates: start: 20090627
  5. TEKTURNA [Concomitant]
     Indication: DRUG USE FOR UNKNOWN INDICATION
     Route: 048
  6. BENICAR [Concomitant]
     Indication: DRUG USE FOR UNKNOWN INDICATION
     Route: 048
     Dates: start: 20090628
  7. COREG [Concomitant]
     Indication: DRUG USE FOR UNKNOWN INDICATION
     Route: 048
  8. COREG [Concomitant]
     Route: 048
  9. SINGULAIR [Concomitant]
     Indication: DRUG USE FOR UNKNOWN INDICATION
     Route: 048
     Dates: start: 20090627
  10. CLARINEX [Concomitant]
     Indication: DRUG USE FOR UNKNOWN INDICATION
     Route: 048
  11. LIPITOR [Concomitant]
     Indication: DRUG USE FOR UNKNOWN INDICATION
     Route: 048
     Dates: start: 20090627
  12. PRANDIN [Concomitant]
     Indication: DRUG USE FOR UNKNOWN INDICATION
     Route: 048
  13. ALLOPURINOL [Concomitant]
     Indication: DRUG USE FOR UNKNOWN INDICATION
     Route: 048
  14. ALLOPURINOL [Concomitant]
     Route: 048
     Dates: start: 20090702
  15. COLCHICINE [Concomitant]
     Indication: DRUG USE FOR UNKNOWN INDICATION
     Route: 048
  16. TRAMADOL HCL [Concomitant]
     Indication: DRUG USE FOR UNKNOWN INDICATION
     Route: 048
  17. MULTI-VITAMINS [Concomitant]
     Indication: DRUG USE FOR UNKNOWN INDICATION
     Route: 048
  18. GLUCOSAMINE [Concomitant]
     Indication: DRUG USE FOR UNKNOWN INDICATION
     Route: 048
  19. CALCIUM [Concomitant]
     Indication: DRUG USE FOR UNKNOWN INDICATION
     Route: 048
  20. HUMALOG [Concomitant]
     Indication: DRUG USE FOR UNKNOWN INDICATION
     Dosage: PER MD SLIDING SCALE
     Route: 058
     Dates: start: 20090627
  21. ACETAMINOPHEN [Concomitant]
     Indication: DRUG USE FOR UNKNOWN INDICATION
     Route: 048
     Dates: start: 20090627
  22. ACETAMINOPHEN AND HYDROCODONE BITARTRATE [Concomitant]
     Indication: DRUG USE FOR UNKNOWN INDICATION
     Dosage: 325-5
     Route: 048
     Dates: start: 20090628
  23. BISACODYL [Concomitant]
     Indication: DRUG USE FOR UNKNOWN INDICATION
     Route: 054
     Dates: start: 20090629
  24. CALCIUM +D [Concomitant]
     Indication: DRUG USE FOR UNKNOWN INDICATION
     Route: 048
     Dates: start: 20090627
  25. CARISOPRODOL [Concomitant]
     Indication: DRUG USE FOR UNKNOWN INDICATION
     Route: 048
     Dates: start: 20090628
  26. CEPHALEXIN [Concomitant]
     Indication: DRUG USE FOR UNKNOWN INDICATION
     Route: 048
     Dates: start: 20090702
  27. CLONIDINE [Concomitant]
     Indication: DRUG USE FOR UNKNOWN INDICATION
     Route: 048
     Dates: start: 20090627
  28. DIPHENHYDRAMINE [Concomitant]
     Indication: DRUG USE FOR UNKNOWN INDICATION
     Route: 051
     Dates: start: 20090628
  29. DOCUSATE SODIUM [Concomitant]
     Indication: DRUG USE FOR UNKNOWN INDICATION
     Route: 048
     Dates: start: 20090629
  30. FAMCICLOVIR [Concomitant]
     Indication: DRUG USE FOR UNKNOWN INDICATION
     Route: 048
     Dates: start: 20090702
  31. FAMCICLOVIR [Concomitant]
     Route: 048
  32. FENTANYL-100 [Concomitant]
     Indication: DRUG USE FOR UNKNOWN INDICATION
     Route: 062
     Dates: start: 20090701
  33. FENTANYL-100 [Concomitant]
     Route: 051
  34. FENTANYL-100 [Concomitant]
     Route: 062
  35. GABAPENTIN [Concomitant]
     Indication: DRUG USE FOR UNKNOWN INDICATION
     Route: 048
     Dates: start: 20090701
  36. HYDROMORPHONE [Concomitant]
     Indication: DRUG USE FOR UNKNOWN INDICATION
     Route: 051
     Dates: start: 20090627
  37. HYDROMORPHONE [Concomitant]
     Route: 051
  38. LEVOFLOXACIN [Concomitant]
     Indication: DRUG USE FOR UNKNOWN INDICATION
     Dosage: 2 DROPS
     Dates: start: 20090701
  39. LORAZEPAM [Concomitant]
     Indication: DRUG USE FOR UNKNOWN INDICATION
     Dosage: 2 DROPS
     Route: 051
     Dates: start: 20090627
  40. MAALOX [Concomitant]
     Indication: DRUG USE FOR UNKNOWN INDICATION
     Dosage: 2 DROPS
     Route: 048
     Dates: start: 20090627
  41. MAGNESIUM HYDROXIDE TAB [Concomitant]
     Indication: DRUG USE FOR UNKNOWN INDICATION
     Dosage: 2 DROPS
     Route: 048
     Dates: start: 20090627
  42. MORPHINE [Concomitant]
     Indication: DRUG USE FOR UNKNOWN INDICATION
     Route: 051
     Dates: start: 20090627
  43. NALOXONE [Concomitant]
     Indication: DRUG USE FOR UNKNOWN INDICATION
     Route: 051
     Dates: start: 20090629
  44. NITROGLYCERIN [Concomitant]
     Indication: DRUG USE FOR UNKNOWN INDICATION
     Route: 060
     Dates: start: 20090627
  45. ONDANSETRON [Concomitant]
     Indication: DRUG USE FOR UNKNOWN INDICATION
     Route: 051
     Dates: start: 20090627
  46. POTASSIUM CHLORIDE [Concomitant]
     Indication: DRUG USE FOR UNKNOWN INDICATION
     Route: 048
     Dates: start: 20090627
  47. ROBITUSSIN-DM [Concomitant]
     Indication: DRUG USE FOR UNKNOWN INDICATION
     Route: 048
     Dates: start: 20090627
  48. ZOLPIDEM [Concomitant]
     Indication: DRUG USE FOR UNKNOWN INDICATION
     Route: 048
     Dates: start: 20090627
  49. ALISKIREN [Concomitant]
     Indication: DRUG USE FOR UNKNOWN INDICATION
     Route: 048
     Dates: start: 20090722
  50. FILGRASTIM [Concomitant]
     Indication: DRUG USE FOR UNKNOWN INDICATION
     Route: 058
  51. GUAIFENESIN [Concomitant]
     Indication: DRUG USE FOR UNKNOWN INDICATION
     Route: 058
  52. INDOMETHACIN [Concomitant]
     Indication: DRUG USE FOR UNKNOWN INDICATION
     Route: 048
     Dates: start: 20090727
  53. LIDOCAINE [Concomitant]
     Indication: DRUG USE FOR UNKNOWN INDICATION
     Route: 048
     Dates: start: 20090722
  54. METHOL/ZINC OXIDE [Concomitant]
     Indication: DRUG USE FOR UNKNOWN INDICATION
     Dosage: 1 APPL
     Route: 061
     Dates: start: 20090722
  55. METOCLOPRAMIDE [Concomitant]
     Indication: DRUG USE FOR UNKNOWN INDICATION
     Route: 051
     Dates: start: 20090723
  56. OLMESARTAN MEDOXOMIL [Concomitant]
     Indication: DRUG USE FOR UNKNOWN INDICATION
     Route: 048
     Dates: start: 20090722
  57. OXYBUTYNIN CHLORIDE [Concomitant]
     Indication: DRUG USE FOR UNKNOWN INDICATION
     Route: 048
     Dates: start: 20090722
  58. SACCHAROMYCES BOULARDII [Concomitant]
     Indication: DRUG USE FOR UNKNOWN INDICATION
     Route: 048
     Dates: start: 20090722
  59. VANCOMYCIN [Concomitant]
     Indication: DRUG USE FOR UNKNOWN INDICATION
     Route: 048
     Dates: start: 20090722
  60. NYSTATIN [Concomitant]
     Indication: DRUG USE FOR UNKNOWN INDICATION
     Dosage: 500,000 UNITS/5ML
     Route: 048
     Dates: start: 20090722
  61. COSYNTROPIN [Concomitant]
     Indication: DRUG USE FOR UNKNOWN INDICATION
     Route: 048
     Dates: start: 20090723, end: 20090723
  62. MIDAZOLAM HCL [Concomitant]
     Indication: DRUG USE FOR UNKNOWN INDICATION
     Route: 051
     Dates: start: 20090726, end: 20090726
  63. MEPERIDINE [Concomitant]
     Indication: DRUG USE FOR UNKNOWN INDICATION
     Route: 030
     Dates: start: 20090726, end: 20090726
  64. ALTEPLASE [Concomitant]
     Indication: DRUG USE FOR UNKNOWN INDICATION
     Route: 050
     Dates: start: 20090714, end: 20090714
  65. ALTEPLASE [Concomitant]
     Route: 048
     Dates: start: 20090702
  66. ALTEPLASE [Concomitant]
     Route: 050
     Dates: start: 20090714, end: 20090714
  67. AMLODIPINE [Concomitant]
     Indication: DRUG USE FOR UNKNOWN INDICATION
     Route: 048
     Dates: start: 20090711
  68. AMLODIPINE [Concomitant]
     Route: 048
     Dates: start: 20090702
  69. AMLODIPINE [Concomitant]
     Route: 050
     Dates: start: 20090714, end: 20090714
  70. SEVELAMER [Concomitant]
     Indication: DRUG USE FOR UNKNOWN INDICATION
     Route: 048
     Dates: start: 20090716
  71. SITAGLIPTIN [Concomitant]
     Indication: DRUG USE FOR UNKNOWN INDICATION
     Route: 048
     Dates: start: 20090711
  72. TUBERSOL [Concomitant]
     Indication: DRUG USE FOR UNKNOWN INDICATION
     Route: 048
     Dates: start: 20090710
  73. PLATELETS [Concomitant]
     Indication: PANCYTOPENIA
     Route: 051
  74. PLATELETS [Concomitant]
     Indication: THROMBOCYTOPENIA
  75. DILAUDID [Concomitant]
     Indication: PAIN
     Route: 051
     Dates: start: 20090627
  76. RED BLOOD CELLS [Concomitant]
     Indication: PANCYTOPENIA
     Route: 051
     Dates: start: 20090630
  77. FLUID RESUSCITATION [Concomitant]
     Indication: SEPSIS
     Route: 051
     Dates: start: 20090721
  78. FLUID RESUSCITATION [Concomitant]
  79. FLUID RESUSCITATION [Concomitant]
     Indication: SEPTIC SHOCK
  80. IMIPINEM [Concomitant]
     Indication: SEPSIS
     Route: 051
     Dates: start: 20090721
  81. IMIPINEM [Concomitant]
     Indication: SEPTIC SHOCK
  82. IMIPINEM [Concomitant]
  83. FLAGYL [Concomitant]
     Indication: SEPSIS
     Route: 048
     Dates: start: 20090721, end: 20090701
  84. FLAGYL [Concomitant]
     Indication: SEPTIC SHOCK
  85. FLAGYL [Concomitant]
  86. DECITABINE [Concomitant]
     Indication: DRUG USE FOR UNKNOWN INDICATION
     Route: 065
     Dates: start: 20090810, end: 20090813

REACTIONS (24)
  - ATELECTASIS [None]
  - BACK PAIN [None]
  - CLOSTRIDIUM DIFFICILE COLITIS [None]
  - CONJUNCTIVAL HAEMORRHAGE [None]
  - CONJUNCTIVITIS [None]
  - DEHYDRATION [None]
  - DEVICE RELATED INFECTION [None]
  - ESCHERICHIA BACTERAEMIA [None]
  - ESCHERICHIA SEPSIS [None]
  - FEBRILE NEUTROPENIA [None]
  - GAIT DISTURBANCE [None]
  - MUSCLE HAEMORRHAGE [None]
  - MUSCULOSKELETAL DISORDER [None]
  - OSTEOARTHRITIS [None]
  - PROCTITIS [None]
  - PULMONARY OEDEMA [None]
  - RENAL CYST [None]
  - RENAL FAILURE ACUTE [None]
  - RENAL TUBULAR NECROSIS [None]
  - RESPIRATORY DISTRESS [None]
  - SEPTIC SHOCK [None]
  - SPINAL OSTEOARTHRITIS [None]
  - STAPHYLOCOCCAL INFECTION [None]
  - TUMOUR LYSIS SYNDROME [None]
